FAERS Safety Report 11982608 (Version 1)
Quarter: 2016Q1

REPORT INFORMATION
  Report Type: Report from Study
  Country: CN (occurrence: CN)
  Receive Date: 20160201
  Receipt Date: 20160201
  Transmission Date: 20160526
  Serious: Yes (Death, Hospitalization)
  Sender: FDA-Public Use
  Company Number: PHHY2016CN001436

PATIENT
  Age: 58 Year
  Sex: Male
  Weight: 57 kg

DRUGS (71)
  1. CICLOSPORIN [Concomitant]
     Active Substance: CYCLOSPORINE
     Indication: RENAL TRANSPLANT
     Dosage: 175 MG, QD (100 MG IN AM; 75 MG IN PM)
     Route: 065
     Dates: start: 20151218
  2. ALBUMIN HUMAN [Concomitant]
     Active Substance: ALBUMIN (HUMAN)
     Dosage: 12500 MG, QD
     Route: 042
     Dates: start: 20151005, end: 20151005
  3. INOSINE [Concomitant]
     Active Substance: INOSINE
     Indication: NUTRITIONAL SUPPLEMENTATION
     Dosage: 1000 MG, QD
     Route: 042
     Dates: start: 20150908, end: 20150916
  4. AMCAL VITAMIN C [Concomitant]
     Indication: VITAMIN C DEFICIENCY
     Dosage: 1000 MG, QD
     Route: 065
     Dates: start: 20150908, end: 20150916
  5. INSULIN [Concomitant]
     Active Substance: INSULIN NOS
     Indication: BLOOD GLUCOSE ABNORMAL
     Dosage: 4 IU, BID
     Route: 042
     Dates: start: 20150908, end: 20150909
  6. LANSOPRAZOLE. [Concomitant]
     Active Substance: LANSOPRAZOLE
     Indication: HAEMORRHAGE
  7. PREDNISONE. [Concomitant]
     Active Substance: PREDNISONE
     Indication: PROPHYLAXIS AGAINST TRANSPLANT REJECTION
     Dosage: 30 MG, QD
     Route: 065
     Dates: start: 20150913, end: 20151004
  8. PREDNISONE. [Concomitant]
     Active Substance: PREDNISONE
     Indication: IMMUNOSUPPRESSION
  9. ALBUMIN HUMAN [Concomitant]
     Active Substance: ALBUMIN (HUMAN)
     Dosage: 12500 MG, QD
     Route: 042
     Dates: start: 20151007, end: 20151014
  10. BUTIOL//DEXAMETHASONE SODIUM PHOSPHATE [Concomitant]
     Indication: IMMUNOSUPPRESSION
  11. PHENTOLAMINE MESILATE [Concomitant]
     Indication: HYPERTENSION
     Dosage: 5 MG, QD
     Route: 042
     Dates: start: 20150910, end: 20150910
  12. DOXAZIN//DOXAZOSIN MESILATE [Concomitant]
     Dosage: 4 MG, BID
     Route: 048
     Dates: start: 20151005, end: 20151102
  13. CALCII CHLORIDUM//CALCIUM CHLORIDE [Concomitant]
     Dosage: 4000 MG, QD
     Route: 065
     Dates: start: 20150920, end: 20150920
  14. CARDURA [Concomitant]
     Active Substance: DOXAZOSIN MESYLATE
     Indication: HYPERTENSION
     Dosage: 4 MG, BID
     Route: 065
     Dates: start: 20151231
  15. MYFORTIC [Suspect]
     Active Substance: MYCOPHENOLATE SODIUM
     Dosage: 360 MG, BID
     Route: 065
     Dates: start: 20151117, end: 20151225
  16. METOPROLOL TARTRATE. [Concomitant]
     Active Substance: METOPROLOL TARTRATE
     Dosage: 25 MG, BID
     Route: 048
     Dates: start: 20151202
  17. FUROSEMIDE. [Concomitant]
     Active Substance: FUROSEMIDE
     Indication: PROPHYLAXIS
  18. NIFEDIPINE. [Concomitant]
     Active Substance: NIFEDIPINE
     Indication: HYPERTENSION
     Dosage: 0.03 G, BID
     Route: 065
     Dates: start: 20151231
  19. BASILIXIMAB [Concomitant]
     Active Substance: BASILIXIMAB
     Indication: PROPHYLAXIS AGAINST TRANSPLANT REJECTION
     Dosage: 20 MG, QD
     Route: 065
     Dates: start: 20150908
  20. IPRATROPIUM BROMIDE. [Concomitant]
     Active Substance: IPRATROPIUM BROMIDE
     Dosage: 0.5 MG, BID
     Route: 055
     Dates: start: 20151005, end: 20151102
  21. BUTIOL//DEXAMETHASONE SODIUM PHOSPHATE [Concomitant]
     Indication: HYPERSENSITIVITY
  22. METHYLPREDNISOLONE W/SUCCINATE SODIUM [Concomitant]
     Active Substance: METHYLPREDNISOLONE SODIUM SUCCINATE
     Indication: ANTIALLERGIC THERAPY
     Dosage: 300 MG, QD
     Route: 065
     Dates: start: 20150919, end: 20150920
  23. ALOSTIN//ALPROSTADIL [Concomitant]
     Dosage: 10 MG, BID
     Route: 065
     Dates: start: 20150909, end: 20150921
  24. DOXAZIN//DOXAZOSIN MESILATE [Concomitant]
     Indication: HYPERTENSION
     Dosage: 4 MG, BID
     Route: 048
     Dates: start: 20150917, end: 20150917
  25. ADVACAL//CALCIUM [Concomitant]
     Dosage: 4000 MG, QD
     Route: 041
     Dates: start: 20150917, end: 20150917
  26. AMCAL VITAMIN C [Concomitant]
     Indication: NUTRITIONAL SUPPLEMENTATION
     Dosage: 2000 MG, QD
     Route: 065
     Dates: start: 20150908, end: 20150916
  27. CEFOPERAZONE SODIUM W/SULBACTAM [Concomitant]
     Active Substance: CEFOPERAZONE SODIUM\SULBACTAM
     Indication: PNEUMONIA
     Dosage: 3 G, TID
     Route: 042
     Dates: start: 20160119
  28. FUROSEMIDE. [Concomitant]
     Active Substance: FUROSEMIDE
     Indication: POLYURIA
     Dosage: 20 MG, BID
     Route: 042
     Dates: start: 20150923, end: 20150923
  29. FUROSEMIDE. [Concomitant]
     Active Substance: FUROSEMIDE
     Indication: ACUTE KIDNEY INJURY
  30. AMBROXOL [Concomitant]
     Active Substance: AMBROXOL
     Indication: PROPHYLAXIS
     Dosage: 15 MG, BID
     Route: 065
  31. PREDNISONE. [Concomitant]
     Active Substance: PREDNISONE
     Indication: ANTIINFLAMMATORY THERAPY
     Dosage: 60 MG, QD
     Route: 065
     Dates: start: 20151005, end: 20151201
  32. ALBUMIN HUMAN [Concomitant]
     Active Substance: ALBUMIN (HUMAN)
     Indication: PROPHYLAXIS
     Dosage: 12500 MG, QD
     Route: 042
     Dates: start: 20150923, end: 20150928
  33. SODIUM BICARBONATE. [Concomitant]
     Active Substance: SODIUM BICARBONATE
     Indication: NUTRITIONAL SUPPLEMENTATION
     Dosage: 150 ML, QD
     Route: 065
     Dates: start: 20150908, end: 20150916
  34. SODIUM BICARBONATE. [Concomitant]
     Active Substance: SODIUM BICARBONATE
     Indication: PROPHYLAXIS
  35. LIGUSTRAZINE [Concomitant]
     Active Substance: TETRAMETHYLPYRAZINE
     Indication: PROPHYLAXIS
     Dosage: 120 MG, QD
     Route: 042
     Dates: start: 20150921, end: 20151004
  36. METHYLPREDNISOLONE W/SUCCINATE SODIUM [Concomitant]
     Active Substance: METHYLPREDNISOLONE SODIUM SUCCINATE
     Indication: ANTIINFLAMMATORY THERAPY
     Dosage: 500 MG, QD
     Route: 065
     Dates: start: 20150908, end: 20150911
  37. DOXAZIN//DOXAZOSIN MESILATE [Concomitant]
     Dosage: 4 MG, BID
     Route: 048
     Dates: start: 20150917, end: 20151004
  38. ADVACAL//CALCIUM [Concomitant]
     Indication: MINERAL SUPPLEMENTATION
     Dosage: 3000 MG, QD
     Route: 041
     Dates: start: 20150915, end: 20150915
  39. EDOSTENE [Concomitant]
     Indication: CONSTIPATION
     Dosage: 122 MG, QD
     Route: 048
     Dates: start: 20150910, end: 20151004
  40. ULINASTATIN [Concomitant]
     Active Substance: ULINASTATIN
     Indication: PROPHYLAXIS
     Dosage: 20 OT, QD
     Route: 042
     Dates: start: 20150909, end: 20150930
  41. LANSOPRAZOLE. [Concomitant]
     Active Substance: LANSOPRAZOLE
     Indication: DUODENAL ULCER
     Dosage: 30 MG, QD
     Route: 065
  42. MYFORTIC [Suspect]
     Active Substance: MYCOPHENOLATE SODIUM
     Indication: PROPHYLAXIS AGAINST TRANSPLANT REJECTION
     Dosage: 560 MG, BID
     Route: 065
     Dates: start: 20150911, end: 20150913
  43. PREDNISONE ACETATE [Concomitant]
     Active Substance: PREDNISONE ACETATE
     Indication: RENAL TRANSPLANT
     Dosage: 20 MG, QD
     Route: 065
     Dates: start: 20151202
  44. PREDNISONE. [Concomitant]
     Active Substance: PREDNISONE
     Indication: ANTIALLERGIC THERAPY
     Dosage: 20 MG, QD
     Route: 065
     Dates: start: 20151202
  45. OMEPRAZOLE SODIUM [Concomitant]
     Active Substance: OMEPRAZOLE SODIUM
     Indication: GASTRIC ULCER
     Dosage: 40 MG, BID
     Route: 042
     Dates: start: 20150908, end: 20150926
  46. LIGUSTRAZINE [Concomitant]
     Active Substance: TETRAMETHYLPYRAZINE
     Indication: HYPERTENSION
     Dosage: 0.1 MG, BID
     Route: 048
     Dates: start: 20151005, end: 20151005
  47. BUTIOL//DEXAMETHASONE SODIUM PHOSPHATE [Concomitant]
     Indication: ANTIINFLAMMATORY THERAPY
     Dosage: 5 MG, QD
     Route: 042
     Dates: start: 20150911, end: 20150911
  48. METOPROLOL TARTRATE. [Concomitant]
     Active Substance: METOPROLOL TARTRATE
     Dosage: 25 MG, BID
     Route: 048
     Dates: start: 20151005, end: 20151102
  49. ALOSTIN//ALPROSTADIL [Concomitant]
     Indication: THROMBOSIS PROPHYLAXIS
     Dosage: 0.02 MG, BID
     Route: 065
     Dates: start: 20151001, end: 20151001
  50. CALCII CHLORIDUM//CALCIUM CHLORIDE [Concomitant]
     Dosage: 4000 MG, QD
     Route: 042
     Dates: start: 20150917, end: 20150917
  51. LACTULOSA [Concomitant]
     Active Substance: LACTULOSE
     Indication: CONSTIPATION PROPHYLAXIS
     Dosage: 66700 MG, QD
     Route: 065
     Dates: start: 20151009, end: 20151009
  52. DOPAMINE [Concomitant]
     Active Substance: DOPAMINE\DOPAMINE HYDROCHLORIDE
     Indication: PROPHYLAXIS
     Dosage: 20 MG, QD
     Route: 042
     Dates: start: 20150910, end: 20150910
  53. FUROSEMIDE. [Concomitant]
     Active Substance: FUROSEMIDE
     Indication: HYPERTENSION
  54. MYFORTIC [Suspect]
     Active Substance: MYCOPHENOLATE SODIUM
     Dosage: 540 MG, BID
     Route: 065
     Dates: start: 20150913, end: 20151005
  55. MYFORTIC [Suspect]
     Active Substance: MYCOPHENOLATE SODIUM
     Dosage: 360 MG, BID
     Route: 065
     Dates: start: 20151005, end: 20151030
  56. SULODEXIDE [Concomitant]
     Active Substance: SULODEXIDE
     Indication: RENAL TRANSPLANT
     Dosage: 250 LSU, BID
     Route: 065
     Dates: start: 20151231
  57. METHYLPREDNISOLONE W/SUCCINATE SODIUM [Concomitant]
     Active Substance: METHYLPREDNISOLONE SODIUM SUCCINATE
     Indication: IMMUNOSUPPRESSION
  58. ALOSTIN//ALPROSTADIL [Concomitant]
     Indication: HYPERTENSION
     Dosage: 0.01 MG, BID
     Route: 065
     Dates: start: 20151005, end: 20151005
  59. CALCII CHLORIDUM//CALCIUM CHLORIDE [Concomitant]
     Indication: SUPPLEMENTATION THERAPY
     Dosage: 3000 MG, QD
     Route: 042
     Dates: start: 20150915, end: 20150915
  60. NITROGLYCERIN. [Concomitant]
     Active Substance: NITROGLYCERIN
     Indication: PROPHYLAXIS
     Dosage: 10 MG, QD
     Route: 042
     Dates: start: 20150908, end: 20150909
  61. MYFORTIC [Suspect]
     Active Substance: MYCOPHENOLATE SODIUM
     Indication: RENAL TRANSPLANT
     Dosage: 720 MG, BID
     Route: 065
     Dates: start: 20150908, end: 20150911
  62. PANTOPRAZOLE [Concomitant]
     Active Substance: PANTOPRAZOLE SODIUM
     Indication: RENAL TRANSPLANT
     Dosage: 40 MG, QD
     Route: 065
     Dates: start: 20151231
  63. ALBUMIN HUMAN [Concomitant]
     Active Substance: ALBUMIN (HUMAN)
     Indication: NUTRITIONAL SUPPLEMENTATION
     Dosage: 12500 MG, QD
     Route: 042
     Dates: start: 20151002, end: 20151004
  64. IPRATROPIUM BROMIDE. [Concomitant]
     Active Substance: IPRATROPIUM BROMIDE
     Indication: PROPHYLAXIS
     Dosage: 0.5 MG, BID
     Route: 055
     Dates: start: 20150908, end: 20151004
  65. METHYLPREDNISOLONE W/SUCCINATE SODIUM [Concomitant]
     Active Substance: METHYLPREDNISOLONE SODIUM SUCCINATE
     Indication: PROPHYLAXIS AGAINST TRANSPLANT REJECTION
     Dosage: 400 MG, QD
     Route: 065
     Dates: start: 20150918, end: 20150918
  66. METOPROLOL TARTRATE. [Concomitant]
     Active Substance: METOPROLOL TARTRATE
     Indication: HYPERTENSION
     Dosage: 25 MG, BID
     Route: 048
     Dates: start: 20150909, end: 20151004
  67. DOXAZIN//DOXAZOSIN MESILATE [Concomitant]
     Dosage: 4 MG, BID
     Route: 048
     Dates: start: 20151202
  68. ADVACAL//CALCIUM [Concomitant]
     Dosage: 4000 MG, QD
     Route: 042
     Dates: start: 20150920, end: 20150920
  69. CEFOPERAZONE SODIUM W/SULBACTAM [Concomitant]
     Active Substance: CEFOPERAZONE SODIUM\SULBACTAM
     Indication: PROPHYLAXIS
     Dosage: 2 G, BID
     Route: 042
     Dates: start: 20150908, end: 20150921
  70. AMBROXOL HYDROCHLORIDE [Concomitant]
     Active Substance: AMBROXOL HYDROCHLORIDE
     Indication: PRODUCT USED FOR UNKNOWN INDICATION
     Dosage: 15 MG, BID
     Route: 065
     Dates: start: 20150914
  71. ALLOPURINOL. [Concomitant]
     Active Substance: ALLOPURINOL
     Indication: PROPHYLAXIS
     Dosage: 1000 MG, BID
     Route: 048
     Dates: start: 20151202

REACTIONS (6)
  - Pneumonia [Fatal]
  - Pyrexia [Fatal]
  - Chest discomfort [Fatal]
  - Dyspnoea [Fatal]
  - Respiratory failure [Fatal]
  - Malaise [Fatal]

NARRATIVE: CASE EVENT DATE: 20151225
